FAERS Safety Report 8336208-2 (Version None)
Quarter: 2012Q2

REPORT INFORMATION
  Report Type: 
  Country: None (occurrence: None)
  Receive Date: 20120501
  Receipt Date: 20120419
  Transmission Date: 20120825
  Serious: Yes (Other)
  Sender: FDA-Public Use
  Company Number: AXC-2011-000524

PATIENT
  Age: 52 Year
  Sex: Male

DRUGS (5)
  1. SULFASALAZINE [Suspect]
     Indication: COLITIS ULCERATIVE
     Dosage: 500 MG, TID, UNKNOWN
  2. DICYCLOMINE [Suspect]
     Indication: PRODUCT USED FOR UNKNOWN INDICATION
     Dosage: 20 MG, TID, UNKNOWN
  3. LITHIUM CARBONATE [Suspect]
     Indication: PSYCHOTIC DISORDER
     Dosage: 450 MG QD @ 9 AM, UNKNOWN 900 MG, QD 9 PM HS, UNKNOWN
  4. FLUCONAZOLE [Suspect]
     Indication: PRODUCT USED FOR UNKNOWN INDICATION
     Dosage: 200 MG, QD, UNKNOWN
  5. RANITIDINE [Suspect]
     Indication: PRODUCT USED FOR UNKNOWN INDICATION
     Dosage: 150 MG, BID, UNKNOWN

REACTIONS (16)
  - DRY SKIN [None]
  - MENTAL STATUS CHANGES [None]
  - AGITATION [None]
  - BODY TEMPERATURE INCREASED [None]
  - CONFUSIONAL STATE [None]
  - MUCOSAL DRYNESS [None]
  - DEHYDRATION [None]
  - SOMNOLENCE [None]
  - BLOOD PRESSURE INCREASED [None]
  - HEART RATE INCREASED [None]
  - ANTIPSYCHOTIC DRUG LEVEL INCREASED [None]
  - SPEECH DISORDER [None]
  - DIET REFUSAL [None]
  - RENAL FAILURE [None]
  - HEADACHE [None]
  - TOXICITY TO VARIOUS AGENTS [None]
